FAERS Safety Report 14258539 (Version 1)
Quarter: 2017Q4

REPORT INFORMATION
  Report Type: Spontaneous
  Country: US (occurrence: US)
  Receive Date: 20171204
  Receipt Date: 20171204
  Transmission Date: 20180321
  Serious: Yes (Disabling)
  Sender: FDA-Public Use
  Company Number: None

PATIENT
  Age: 52 Year
  Sex: Female
  Weight: 60.3 kg

DRUGS (2)
  1. ELIDEL [Suspect]
     Active Substance: PIMECROLIMUS
  2. TOPICAL STEROIDS [Suspect]
     Active Substance: UNSPECIFIED INGREDIENT
     Indication: ECZEMA
     Dates: start: 19900601, end: 20150615

REACTIONS (12)
  - Steroid withdrawal syndrome [None]
  - Insomnia [None]
  - Peripheral swelling [None]
  - Eye swelling [None]
  - Social problem [None]
  - Impaired work ability [None]
  - Wound secretion [None]
  - Lymphadenopathy [None]
  - Pruritus [None]
  - Rash generalised [None]
  - Skin exfoliation [None]
  - Rash [None]

NARRATIVE: CASE EVENT DATE: 20150602
